FAERS Safety Report 12012338 (Version 3)
Quarter: 2016Q1

REPORT INFORMATION
  Report Type: Spontaneous
  Country: GR (occurrence: GR)
  Receive Date: 20160205
  Receipt Date: 20160318
  Transmission Date: 20160526
  Serious: Yes (Other)
  Sender: FDA-Public Use
  Company Number: GR-JNJFOC-20160124315

PATIENT
  Age: 58 Year
  Sex: Female

DRUGS (2)
  1. METOJECT [Concomitant]
     Active Substance: METHOTREXATE SODIUM
     Route: 065
  2. SIMPONI [Suspect]
     Active Substance: GOLIMUMAB
     Indication: PSORIATIC ARTHROPATHY
     Route: 058
     Dates: start: 201510

REACTIONS (2)
  - Sluggishness [Unknown]
  - Breast mass [Unknown]
